FAERS Safety Report 7248708-7 (Version None)
Quarter: 2011Q1

REPORT INFORMATION
  Report Type: 
  Country: None (occurrence: None)
  Receive Date: 20110128
  Receipt Date: 20110120
  Transmission Date: 20110831
  Serious: Yes (Hospitalization)
  Sender: FDA-Public Use
  Company Number: US-SHIRE-SPV1-2011-00081

PATIENT
  Age: 3 Year
  Sex: Male

DRUGS (3)
  1. ANTICONVULSANT [Suspect]
     Dosage: 100 MG, UNK
  2. RISPERIDONE [Suspect]
     Dosage: 0.25 MG, UNK
  3. VYVANSE [Suspect]

REACTIONS (7)
  - VOMITING [None]
  - ATAXIA [None]
  - ACCIDENTAL EXPOSURE [None]
  - BRUXISM [None]
  - DYSTONIA [None]
  - DEPRESSED LEVEL OF CONSCIOUSNESS [None]
  - NYSTAGMUS [None]
